FAERS Safety Report 7948182-9 (Version None)
Quarter: 2011Q4

REPORT INFORMATION
  Report Type: 
  Country: None (occurrence: None)
  Receive Date: 20111125
  Receipt Date: 20111114
  Transmission Date: 20120403
  Serious: Yes (Other)
  Sender: FDA-Public Use
  Company Number: 1000025634

PATIENT
  Age: 10 Month
  Sex: Male

DRUGS (1)
  1. SAVELLA [Suspect]
     Dosage: TRANSPLACENTAL
     Route: 064
     Dates: end: 20101201

REACTIONS (2)
  - SKULL MALFORMATION [None]
  - MATERNAL DRUGS AFFECTING FOETUS [None]
